FAERS Safety Report 7917940-9 (Version None)
Quarter: 2011Q4

REPORT INFORMATION
  Report Type: 
  Country: None (occurrence: None)
  Receive Date: 20111116
  Receipt Date: 20111109
  Transmission Date: 20120403
  Serious: Yes (Hospitalization)
  Sender: FDA-Public Use
  Company Number: SE-JNJFOC-20111104257

PATIENT
  Sex: Male

DRUGS (1)
  1. CONCERTA [Suspect]
     Indication: ATTENTION DEFICIT/HYPERACTIVITY DISORDER
     Route: 048
     Dates: start: 20090101

REACTIONS (8)
  - VISUAL ACUITY REDUCED [None]
  - HEMIPARESIS [None]
  - HEARING IMPAIRED [None]
  - SENSORY DISTURBANCE [None]
  - HYPOAESTHESIA [None]
  - HEADACHE [None]
  - VASOSPASM [None]
  - TINNITUS [None]
